FAERS Safety Report 10342488 (Version 3)
Quarter: 2015Q1

REPORT INFORMATION
  Report Type: Spontaneous
  Country: US (occurrence: US)
  Receive Date: 20140725
  Receipt Date: 20150212
  Transmission Date: 20150720
  Serious: Yes (Hospitalization)
  Sender: FDA-Public Use
  Company Number: US-BAYER-2014-109577

PATIENT
  Age: 24 Year
  Sex: Female
  Weight: 63 kg

DRUGS (2)
  1. MIRENA [Suspect]
     Active Substance: LEVONORGESTREL
     Indication: CONTRACEPTION
     Dosage: 20 MCG/24HR, CONT
     Route: 015
     Dates: start: 20131024, end: 20140206
  2. MIRENA [Suspect]
     Active Substance: LEVONORGESTREL
     Indication: CONTRACEPTION
     Dosage: 20 MCG/24HR, CONT
     Route: 015
     Dates: start: 20090326, end: 201110

REACTIONS (15)
  - Abdominal discomfort [Not Recovered/Not Resolved]
  - Nausea [Not Recovered/Not Resolved]
  - Depression [None]
  - Gastrointestinal injury [None]
  - Abdominal pain lower [Not Recovered/Not Resolved]
  - Scar [None]
  - Anxiety [None]
  - Procedural pain [None]
  - Fatigue [Not Recovered/Not Resolved]
  - Fear of disease [None]
  - Uterine perforation [Not Recovered/Not Resolved]
  - Emotional distress [None]
  - Stress [None]
  - Injury [Not Recovered/Not Resolved]
  - Abdominal pain [Not Recovered/Not Resolved]

NARRATIVE: CASE EVENT DATE: 201310
